FAERS Safety Report 26135349 (Version 1)
Quarter: 2025Q4

REPORT INFORMATION
  Report Type: Spontaneous
  Country: US (occurrence: US)
  Receive Date: 20251209
  Receipt Date: 20251209
  Transmission Date: 20260118
  Serious: No
  Sender: NOVEN
  Company Number: US-NOVEN PHARMACEUTICALS, INC.-2025-NOV-US000604

PATIENT
  Sex: Female
  Weight: 79.819 kg

DRUGS (3)
  1. ESTRADIOL [Suspect]
     Active Substance: ESTRADIOL
     Indication: Artificial menopause
     Dosage: 0.1MG, TWICE WEEKLY
     Route: 062
  2. ESTRADIOL [Suspect]
     Active Substance: ESTRADIOL
     Dosage: 0.1 MG (2 PATCHES OF 0.05 MG), TWICE WEEKLY
     Route: 062
  3. ESTRADIOL [Suspect]
     Active Substance: ESTRADIOL
     Dosage: 0.05 MG TWICE WEEKLY
     Route: 062

REACTIONS (6)
  - Blood oestrogen decreased [Unknown]
  - Hyperhidrosis [Recovered/Resolved]
  - Insomnia [Recovered/Resolved]
  - Product adhesion issue [Recovered/Resolved]
  - Product colour issue [Recovered/Resolved]
  - Product quality issue [Recovered/Resolved]

NARRATIVE: CASE EVENT DATE: 20250101
